FAERS Safety Report 12083914 (Version 1)
Quarter: 2016Q1

REPORT INFORMATION
  Report Type: Spontaneous
  Country: US (occurrence: None)
  Receive Date: 20160216
  Receipt Date: 20160216
  Transmission Date: 20160526
  Serious: Yes (Other)
  Sender: FDA-Public Use
  Company Number: None

PATIENT
  Age: 22 Year
  Sex: Female
  Weight: 58.97 kg

DRUGS (8)
  1. FENTANYL TRANSDERMAL SYSTEM [Suspect]
     Active Substance: FENTANYL
     Indication: NEUROPATHY PERIPHERAL
     Dosage: 1 PATCH EVERY 48 HOURS APPLIED AS MEDICATED PATCH TO SKIN
     Dates: start: 20140901, end: 20160212
  2. FENTANYL TRANSDERMAL SYSTEM [Suspect]
     Active Substance: FENTANYL
     Indication: AUTONOMIC NERVOUS SYSTEM IMBALANCE
     Dosage: 1 PATCH EVERY 48 HOURS APPLIED AS MEDICATED PATCH TO SKIN
     Dates: start: 20140901, end: 20160212
  3. VENLAFAXINE [Concomitant]
     Active Substance: VENLAFAXINE HYDROCHLORIDE
  4. BACLOFEN. [Concomitant]
     Active Substance: BACLOFEN
  5. VYVANSE [Concomitant]
     Active Substance: LISDEXAMFETAMINE DIMESYLATE
  6. CORLANOR [Concomitant]
     Active Substance: IVABRADINE HYDROCHLORIDE
  7. FENTANYL TRANSDERMAL SYSTEM [Suspect]
     Active Substance: FENTANYL
     Indication: PAIN
     Dosage: 1 PATCH EVERY 48 HOURS APPLIED AS MEDICATED PATCH TO SKIN
     Dates: start: 20140901, end: 20160212
  8. FENTANYL TRANSDERMAL SYSTEM [Suspect]
     Active Substance: FENTANYL
     Indication: ROAD TRAFFIC ACCIDENT
     Dosage: 1 PATCH EVERY 48 HOURS APPLIED AS MEDICATED PATCH TO SKIN
     Dates: start: 20140901, end: 20160212

REACTIONS (4)
  - Feeling cold [None]
  - Dyspnoea [None]
  - Cyanosis central [None]
  - Cold sweat [None]

NARRATIVE: CASE EVENT DATE: 20160101
